FAERS Safety Report 14984535 (Version 1)
Quarter: 2018Q2

REPORT INFORMATION
  Report Type: Spontaneous
  Country: US (occurrence: US)
  Receive Date: 20180607
  Receipt Date: 20180607
  Transmission Date: 20180711
  Serious: No
  Sender: FDA-Public Use
  Company Number: US-BAYER-2018-103321

PATIENT

DRUGS (1)
  1. CLARITIN [Suspect]
     Active Substance: LORATADINE
     Dosage: 0.5 DF, UNK

REACTIONS (4)
  - Underdose [Unknown]
  - Drug dose omission [None]
  - Drug intolerance [Unknown]
  - Drug administered to patient of inappropriate age [None]
